FAERS Safety Report 10284921 (Version 1)
Quarter: 2014Q3

REPORT INFORMATION
  Report Type: Spontaneous
  Country: US (occurrence: US)
  Receive Date: 20140708
  Receipt Date: 20140708
  Transmission Date: 20150326
  Serious: Yes (Hospitalization)
  Sender: FDA-Public Use
  Company Number: US-GLAXOSMITHKLINE-A1079424A

PATIENT
  Age: 59 Year
  Sex: Female

DRUGS (15)
  1. COREG CR [Suspect]
     Active Substance: CARVEDILOL PHOSPHATE
     Indication: CARDIAC FAILURE CONGESTIVE
     Dosage: 40MG PER DAY
     Route: 048
  2. FUROSEMIDE. [Concomitant]
     Active Substance: FUROSEMIDE
  3. VITAMIN D [Concomitant]
     Active Substance: CHOLECALCIFEROL
  4. WARFARIN [Concomitant]
     Active Substance: WARFARIN
  5. NOVOLOG [Concomitant]
     Active Substance: INSULIN ASPART
  6. LEVEMIR [Concomitant]
     Active Substance: INSULIN DETEMIR
  7. LISINOPRIL. [Concomitant]
     Active Substance: LISINOPRIL
  8. PACERONE [Concomitant]
     Active Substance: AMIODARONE HYDROCHLORIDE
  9. LEVOTHYROXINE [Concomitant]
     Active Substance: LEVOTHYROXINE
  10. SPIRONOLACTONE. [Concomitant]
     Active Substance: SPIRONOLACTONE
  11. BLOOD PRESSURE MEDICATION [Concomitant]
     Active Substance: UNSPECIFIED INGREDIENT
  12. SIMVASTATIN. [Concomitant]
     Active Substance: SIMVASTATIN
  13. PROTONIX [Concomitant]
     Active Substance: PANTOPRAZOLE SODIUM
  14. WELLBUTRIN SR [Concomitant]
     Active Substance: BUPROPION HYDROCHLORIDE
  15. OXYGEN. [Concomitant]
     Active Substance: OXYGEN

REACTIONS (3)
  - Dyspnoea [Unknown]
  - Dyspnoea exertional [Unknown]
  - Pericardial effusion [Unknown]
